FAERS Safety Report 24071107 (Version 1)
Quarter: 2024Q3

REPORT INFORMATION
  Report Type: Report from Study
  Country: US (occurrence: US)
  Receive Date: 20240710
  Receipt Date: 20240710
  Transmission Date: 20241016
  Serious: No
  Sender: ROCHE
  Company Number: US-ROCHE-3392424

PATIENT
  Age: 71 Year
  Sex: Female

DRUGS (1)
  1. ALECENSA [Suspect]
     Active Substance: ALECTINIB HYDROCHLORIDE
     Indication: Malignant neoplasm of unknown primary site
     Dosage: TAKE 4 CAPSULE(S) BY MOUTH (600MG) TWICE A DAY
     Route: 048

REACTIONS (2)
  - Cellulitis [Unknown]
  - Off label use [Unknown]
